FAERS Safety Report 5761904-0 (Version None)
Quarter: 2008Q2

REPORT INFORMATION
  Report Type: 
  Country: None (occurrence: None)
  Receive Date: 20080603
  Receipt Date: 20080316
  Transmission Date: 20081010
  Serious: Yes (Other)
  Sender: FDA-Public Use
  Company Number: 2008S1001991

PATIENT
  Age: 62 Year
  Sex: Female

DRUGS (4)
  1. PHOSPHOSODA UNFLAVORED [Suspect]
     Indication: CONSTIPATION
     Dosage: 15 ML; X1; PO
     Route: 048
     Dates: start: 20080316, end: 20080316
  2. CELEBREX [Concomitant]
  3. LASIX [Concomitant]
  4. ROBITUSSIN WITH CODEINE [Concomitant]

REACTIONS (4)
  - ABDOMINAL DISTENSION [None]
  - CONSTIPATION [None]
  - DRUG INEFFECTIVE [None]
  - NAUSEA [None]
